FAERS Safety Report 17100299 (Version 2)
Quarter: 2019Q4

REPORT INFORMATION
  Report Type: Spontaneous
  Country: US (occurrence: US)
  Receive Date: 20191202
  Receipt Date: 20191224
  Transmission Date: 20200122
  Serious: No
  Sender: FDA-Public Use
  Company Number: US-JNJFOC-20191134543

PATIENT
  Age: 49 Year
  Sex: Male
  Weight: 99.88 kg

DRUGS (2)
  1. SIMPONI [Suspect]
     Active Substance: GOLIMUMAB
     Indication: COLITIS ULCERATIVE
     Route: 058
  2. ALLOPURINOL. [Concomitant]
     Active Substance: ALLOPURINOL
     Indication: GOUT
     Route: 048

REACTIONS (4)
  - Panic attack [Recovered/Resolved]
  - Underdose [Unknown]
  - Accidental exposure to product [Unknown]
  - Device malfunction [Unknown]

NARRATIVE: CASE EVENT DATE: 20191119
